FAERS Safety Report 24740619 (Version 4)
Quarter: 2025Q3

REPORT INFORMATION
  Report Type: Spontaneous
  Country: US (occurrence: US)
  Receive Date: 20241217
  Receipt Date: 20250709
  Transmission Date: 20251021
  Serious: Yes (Other)
  Sender: ENDO
  Company Number: US-ENDO USA, INC.-2024-002425

PATIENT
  Sex: Male
  Weight: 122.45 kg

DRUGS (15)
  1. XIAFLEX [Suspect]
     Active Substance: COLLAGENASE CLOSTRIDIUM HISTOLYTICUM
     Indication: Peyronie^s disease
     Route: 051
  2. XIAFLEX [Suspect]
     Active Substance: COLLAGENASE CLOSTRIDIUM HISTOLYTICUM
     Route: 051
     Dates: start: 20240514
  3. XIAFLEX [Suspect]
     Active Substance: COLLAGENASE CLOSTRIDIUM HISTOLYTICUM
     Route: 051
     Dates: start: 2023
  4. XIAFLEX [Suspect]
     Active Substance: COLLAGENASE CLOSTRIDIUM HISTOLYTICUM
     Route: 051
  5. XIAFLEX [Suspect]
     Active Substance: COLLAGENASE CLOSTRIDIUM HISTOLYTICUM
     Route: 051
  6. XIAFLEX [Suspect]
     Active Substance: COLLAGENASE CLOSTRIDIUM HISTOLYTICUM
     Route: 051
  7. XIAFLEX [Suspect]
     Active Substance: COLLAGENASE CLOSTRIDIUM HISTOLYTICUM
     Route: 051
  8. XIAFLEX [Suspect]
     Active Substance: COLLAGENASE CLOSTRIDIUM HISTOLYTICUM
     Route: 051
  9. XIAFLEX [Suspect]
     Active Substance: COLLAGENASE CLOSTRIDIUM HISTOLYTICUM
     Route: 051
  10. XIAFLEX [Suspect]
     Active Substance: COLLAGENASE CLOSTRIDIUM HISTOLYTICUM
     Route: 051
  11. XIAFLEX [Suspect]
     Active Substance: COLLAGENASE CLOSTRIDIUM HISTOLYTICUM
     Route: 051
  12. XIAFLEX [Suspect]
     Active Substance: COLLAGENASE CLOSTRIDIUM HISTOLYTICUM
     Route: 051
  13. ZYLOPRIM [Concomitant]
     Active Substance: ALLOPURINOL
     Indication: Product used for unknown indication
     Route: 048
     Dates: start: 20170429
  14. LIPITOR [Concomitant]
     Active Substance: ATORVASTATIN CALCIUM
     Indication: Product used for unknown indication
     Route: 048
     Dates: start: 20170429
  15. MEDROL [Concomitant]
     Active Substance: METHYLPREDNISOLONE
     Indication: Product used for unknown indication
     Route: 065
     Dates: start: 20170526

REACTIONS (55)
  - Fracture of penis [Not Recovered/Not Resolved]
  - Abdominal pain upper [Unknown]
  - Diarrhoea [Unknown]
  - Disorientation [Unknown]
  - Dyspnoea [Unknown]
  - Fatigue [Unknown]
  - Haematuria [Unknown]
  - Hydrocele [Not Recovered/Not Resolved]
  - Hyperhidrosis [Not Recovered/Not Resolved]
  - Irritability [Unknown]
  - Lung disorder [Unknown]
  - Musculoskeletal disorder [Unknown]
  - Peyronie^s disease [Not Recovered/Not Resolved]
  - Condition aggravated [Not Recovered/Not Resolved]
  - Nausea [Not Recovered/Not Resolved]
  - Pelvic pain [Not Recovered/Not Resolved]
  - Penile burning sensation [Not Recovered/Not Resolved]
  - Perineal pain [Unknown]
  - Penile necrosis [Unknown]
  - Penile size reduced [Not Recovered/Not Resolved]
  - Perineal swelling [Unknown]
  - Testicular pain [Unknown]
  - Testicular swelling [Unknown]
  - Treatment delayed [Unknown]
  - Panic reaction [Recovering/Resolving]
  - Penile infection [Unknown]
  - Scar [Unknown]
  - Thinking abnormal [Recovering/Resolving]
  - Urethral stenosis [Recovering/Resolving]
  - Urethral fistula [Unknown]
  - Vomiting [Unknown]
  - Testicular mass [Unknown]
  - Emotional distress [Unknown]
  - Testicular disorder [Not Recovered/Not Resolved]
  - Penis disorder [Unknown]
  - Pain [Unknown]
  - Rectal lesion [Unknown]
  - Spermatic cord disorder [Not Recovered/Not Resolved]
  - Varicocele [Not Recovered/Not Resolved]
  - Crohn^s disease [Unknown]
  - Angiopathy [Unknown]
  - Asthenia [Unknown]
  - Foreign body [Not Recovered/Not Resolved]
  - Groin pain [Unknown]
  - Deformity [Not Recovered/Not Resolved]
  - Genital pain [Unknown]
  - Erectile dysfunction [Not Recovered/Not Resolved]
  - Penile pain [Unknown]
  - Scrotal pain [Not Recovered/Not Resolved]
  - Penile swelling [Unknown]
  - Scrotal swelling [Unknown]
  - Drug ineffective [Unknown]
  - Inappropriate schedule of product administration [Unknown]
  - Wrong technique in product usage process [Unknown]
  - Off label use [Unknown]

NARRATIVE: CASE EVENT DATE: 20240101
